FAERS Safety Report 8178266-4 (Version None)
Quarter: 2012Q1

REPORT INFORMATION
  Report Type: 
  Country: None (occurrence: None)
  Receive Date: 20120301
  Receipt Date: 20120222
  Transmission Date: 20120608
  Serious: Yes (Hospitalization, Disabling)
  Sender: FDA-Public Use
  Company Number: US-BAYER-2012-017880

PATIENT
  Age: 67 Year
  Sex: Female
  Weight: 36 kg

DRUGS (14)
  1. ADVAIR DISKUS 100/50 [Interacting]
     Indication: DYSPNOEA
     Dosage: 500/50 ?G, QID
  2. IPRATROPIUM BROMIDE [Interacting]
     Indication: DYSPNOEA
  3. KLONOPIN [Interacting]
     Indication: NERVE DEGENERATION
     Dosage: UNK UNK, QID
     Dates: start: 20110101
  4. LEVOTHYROXINE SODIUM [Interacting]
     Dosage: UNK
     Dates: start: 19950101
  5. NEXIUM [Interacting]
     Indication: GASTRIC DISORDER
  6. FLUTICASONE PROPIONATE [Interacting]
     Indication: DYSPNOEA
  7. HYDROCODONE BITARTRATE [Interacting]
     Indication: ARTHRALGIA
     Dosage: UNK UNK, QID
     Dates: start: 20110101
  8. METOCLOPRAMIDE [Interacting]
     Dosage: UNK UNK, TID
     Dates: start: 20111001
  9. CHANTIX [Interacting]
     Dosage: DAILY DOSE 0.5 MG
     Route: 048
     Dates: start: 20120101
  10. SINGULAIR [Interacting]
     Indication: DYSPNOEA
     Dosage: UNK
  11. ASPIRIN [Suspect]
     Dosage: DAILY DOSE 325 MG
     Dates: start: 20110101
  12. CALCIUM CARBONATE [Interacting]
     Dosage: UNK UNK, BID
     Dates: start: 20111201
  13. CHANTIX [Interacting]
     Indication: EX-TOBACCO USER
     Dosage: DAILY DOSE 0.5 MG
     Route: 048
     Dates: start: 20110901, end: 20110901
  14. ALBUTEROL SULFATE [Interacting]
     Indication: DYSPNOEA

REACTIONS (5)
  - CEREBROVASCULAR ACCIDENT [None]
  - APHASIA [None]
  - GAIT DISTURBANCE [None]
  - MENTAL IMPAIRMENT [None]
  - ABASIA [None]
